FAERS Safety Report 4826206-5 (Version None)
Quarter: 2005Q4

REPORT INFORMATION
  Report Type: 
  Country: None (occurrence: None)
  Receive Date: 20051109
  Receipt Date: 20051028
  Transmission Date: 20060501
  Serious: Yes (Hospitalization, Other)
  Sender: FDA-Public Use
  Company Number: KII-2005-0019351

PATIENT
  Age: 54 Year
  Sex: Male

DRUGS (14)
  1. OXYCONTIN [Suspect]
  2. MORPHINE SULFATE [Suspect]
     Dosage: TID, ORAL
     Route: 048
  3. ATENOLOL [Suspect]
     Dosage: BID, ORAL
     Route: 048
  4. LISINOPRIL [Suspect]
     Dosage: BID, ORAL
     Route: 048
  5. CYCLOBENZAPRINE HCL [Suspect]
     Dosage: 3 TABLET, TID, ORAL
     Route: 048
  6. BENZODIAZEPINE  DERIVATES [Suspect]
     Dosage: SEE TEXT, ORAL
     Route: 048
  7. SERUMLIPIDREDUCING AGENTS [Suspect]
     Dosage: DAILY, ORAL
     Route: 048
  8. FUROSEMIDE [Suspect]
     Dosage: 2 TABLET, AM, ORAL
     Route: 048
  9. GABAPENTIN [Suspect]
     Dosage: 3 TABLET, TID, ORAL
     Route: 048
  10. GLIPIZIDE [Suspect]
     Dosage: 3 TABELT, BID, ORAL
     Route: 048
  11. METFORMIN HCL [Suspect]
     Dosage: TID, ORAL
     Route: 048
  12. NORTRIPTYLINE HCL [Suspect]
     Dosage: TID, ORAL
     Route: 048
  13. TRAZODONE HCL [Suspect]
     Dosage: HS, ORAL
     Route: 048
  14. POTASSIUM CHLORIDE [Concomitant]
     Dosage: BID, ORAL
     Route: 048

REACTIONS (11)
  - ALANINE AMINOTRANSFERASE INCREASED [None]
  - ASPARTATE AMINOTRANSFERASE INCREASED [None]
  - BLOOD POTASSIUM INCREASED [None]
  - CONFUSIONAL STATE [None]
  - HYPOTENSION [None]
  - LETHARGY [None]
  - RENAL IMPAIRMENT [None]
  - RESPIRATORY DEPRESSION [None]
  - RHABDOMYOLYSIS [None]
  - SOMNOLENCE [None]
  - WHITE BLOOD CELL COUNT INCREASED [None]
